FAERS Safety Report 4349195-9 (Version None)
Quarter: 2004Q2

REPORT INFORMATION
  Report Type: 
  Country: None (occurrence: None)
  Receive Date: 20040428
  Receipt Date: 20010209
  Transmission Date: 20050107
  Serious: Yes (Life-Threatening, Other)
  Sender: FDA-Public Use
  Company Number: PHEH2001US01515

PATIENT
  Age: 61 Year
  Sex: Male
  Weight: 96 kg

DRUGS (3)
  1. LAMISIL [Suspect]
     Indication: NAIL TINEA
     Dosage: 250 MG, QD
     Route: 048
     Dates: start: 20001129, end: 20010119
  2. VIOXX [Concomitant]
  3. SYNTHROID [Concomitant]

REACTIONS (6)
  - ARTHRALGIA [None]
  - CORONARY ARTERY DISEASE [None]
  - CUTANEOUS LUPUS ERYTHEMATOSUS [None]
  - ERYTHEMA MULTIFORME [None]
  - PRURITUS [None]
  - RASH [None]
